FAERS Safety Report 17823188 (Version 1)
Quarter: 2020Q2

REPORT INFORMATION
  Report Type: Spontaneous
  Country: US (occurrence: US)
  Receive Date: 20200525
  Receipt Date: 20200525
  Transmission Date: 20200714
  Serious: No
  Sender: FDA-Public Use
  Company Number: None

PATIENT
  Age: 60 Year
  Sex: Female
  Weight: 143 kg

DRUGS (12)
  1. REMDESIVIR. [Suspect]
     Active Substance: REMDESIVIR
     Indication: COVID-19
     Dates: start: 20200520, end: 20200522
  2. FAMOTIDINE 20MG TABLETS [Concomitant]
     Active Substance: FAMOTIDINE
     Dates: start: 20200519
  3. LEVOTHYROXINE 50MCG TABLET [Concomitant]
     Active Substance: LEVOTHYROXINE
     Dates: start: 20200519
  4. ALBUTEROL INHALER [Concomitant]
     Active Substance: ALBUTEROL
     Dates: start: 20200519
  5. AMLODIPINE [Concomitant]
     Active Substance: AMLODIPINE BESYLATE
     Dates: start: 20200519
  6. ROSUVASTATIN 20 MG TABLET [Concomitant]
     Active Substance: ROSUVASTATIN
     Dates: start: 20200519
  7. INSULIN GLARGINE [Concomitant]
     Active Substance: INSULIN GLARGINE
     Dates: start: 20200520
  8. DOCUSATE 100 MG CAPSULE [Concomitant]
     Active Substance: DOCUSATE SODIUM
     Dates: start: 20200519
  9. BENZONATATE 200MG CAPSULES [Concomitant]
     Active Substance: BENZONATATE
     Dates: start: 20200519
  10. SENNA TABS [Concomitant]
     Active Substance: SENNOSIDES A AND B
     Dates: start: 20200519
  11. ENOXAPARIN 40 MG SUBCUTANEOUS [Concomitant]
     Active Substance: ENOXAPARIN
     Dates: start: 20200519
  12. INSULIN LISPRO SUBCUTANEOUS [Concomitant]
     Active Substance: INSULIN LISPRO
     Dates: start: 20200519

REACTIONS (2)
  - Alanine aminotransferase increased [None]
  - Aspartate aminotransferase increased [None]

NARRATIVE: CASE EVENT DATE: 20200522
